FAERS Safety Report 8831214 (Version 3)
Quarter: 2013Q2

REPORT INFORMATION
  Report Type: Report from Study
  Country: AU (occurrence: AU)
  Receive Date: 20121008
  Receipt Date: 20130425
  Transmission Date: 20140414
  Serious: Yes (Hospitalization)
  Sender: FDA-Public Use
  Company Number: AU-VERTEX PHARMACEUTICAL INC.-000000000000000643

PATIENT
  Age: 52 Year
  Sex: Male
  Weight: 75 kg

DRUGS (18)
  1. VX-950 (TELAPREVIR) [Suspect]
     Indication: HEPATITIS C
     Dosage: 750 MG, TID
     Route: 048
     Dates: start: 20120309, end: 20120430
  2. RIBAVIRIN [Suspect]
     Indication: HEPATITIS C
     Dosage: DOSAGE FORM: TABLET
     Route: 048
     Dates: start: 20120309
  3. PEGINTERFERON ALFA [Suspect]
     Indication: HEPATITIS C
     Dosage: DOSAGE FORM: INJECTION
     Route: 058
     Dates: start: 20120309
  4. PHENERGAN [Concomitant]
     Dosage: 25 MG, BID
  5. LOPERAMIDE [Concomitant]
     Dosage: 2 MG, BID
  6. NEUROFEN [Concomitant]
     Dosage: 200 MG, PRN
  7. ALBALON [Concomitant]
     Dosage: 1 DF, BID
  8. ALBALON [Concomitant]
     Dosage: 1 DF, PRN
  9. ALBALON [Concomitant]
     Dosage: DOSAGE FORM: OINTMENT
  10. ALBALON [Concomitant]
     Dosage: DOSAGE FORM: OINTMENT
  11. TELFAST [Concomitant]
     Dosage: 60 MG, QD
  12. TEMAZEPAM [Concomitant]
     Dosage: 10 MG, AS NEEDED
  13. ADVANTAN [Concomitant]
     Dosage: 1 DF, BID
  14. ADVANTAN [Concomitant]
     Dosage: DOSAGE FORM: OINTMENT
  15. PERIACTIN [Concomitant]
     Dosage: 4 MG, BID
  16. PROCTOSEDYL [Concomitant]
     Dosage: UNK, BID
  17. PROCTOSEDYL [Concomitant]
     Dosage: DOSAGE FORM: OINTMENT
  18. PROCTOSEDYL [Concomitant]
     Dosage: DOSAGE FORM: OINTMENT

REACTIONS (1)
  - Intestinal obstruction [Recovered/Resolved]
